FAERS Safety Report 18879627 (Version 7)
Quarter: 2022Q2

REPORT INFORMATION
  Report Type: Report from Study
  Country: JP (occurrence: JP)
  Receive Date: 20210211
  Receipt Date: 20220509
  Transmission Date: 20220721
  Serious: Yes (Death, Life-Threatening, Hospitalization, Other)
  Sender: FDA-Public Use
  Company Number: JP-KYOWAKIRIN-2021AKK001534

PATIENT

DRUGS (57)
  1. MOGAMULIZUMAB [Suspect]
     Active Substance: MOGAMULIZUMAB
     Indication: Adult T-cell lymphoma/leukaemia
     Dosage: 1 MG/KG, 1X/3 WEEKS
     Route: 041
     Dates: start: 20180427, end: 20180518
  2. MOGAMULIZUMAB [Suspect]
     Active Substance: MOGAMULIZUMAB
     Dosage: 1 MG/KG, 1X/4 WEEKS
     Route: 041
     Dates: start: 20171218, end: 20180116
  3. MOGAMULIZUMAB [Suspect]
     Active Substance: MOGAMULIZUMAB
     Dosage: 1 MG/KG
     Route: 041
     Dates: start: 20180209, end: 20180209
  4. REVLIMID [Suspect]
     Active Substance: LENALIDOMIDE
     Indication: Adult T-cell lymphoma/leukaemia
     Dosage: 15 MG
     Route: 048
     Dates: start: 20171223, end: 20180310
  5. REVLIMID [Suspect]
     Active Substance: LENALIDOMIDE
     Dosage: 25 MG
     Route: 048
     Dates: start: 20180421, end: 20180425
  6. REVLIMID [Suspect]
     Active Substance: LENALIDOMIDE
     Dosage: UNK
     Route: 048
     Dates: start: 20180518
  7. DEXCHLORPHENIRAMINE MALEATE [Concomitant]
     Active Substance: DEXCHLORPHENIRAMINE MALEATE
     Indication: Prophylaxis
     Dosage: UNK UNK, 1X/4 WEEKS
     Route: 065
     Dates: start: 20171218, end: 20180116
  8. DEXCHLORPHENIRAMINE MALEATE [Concomitant]
     Active Substance: DEXCHLORPHENIRAMINE MALEATE
     Dosage: UNK UNK, 1X/4 WEEKS
     Route: 065
     Dates: start: 20180209, end: 20180209
  9. DEXCHLORPHENIRAMINE MALEATE [Concomitant]
     Active Substance: DEXCHLORPHENIRAMINE MALEATE
     Dosage: UNK UNK, 1X/3 WEEKS
     Route: 065
     Dates: start: 20180427, end: 20180518
  10. DEXAMETHASONE SODIUM PHOSPHATE [Concomitant]
     Active Substance: DEXAMETHASONE SODIUM PHOSPHATE
     Indication: Prophylaxis
     Dosage: 6.6 MG, 1X/4 WEEKS
     Route: 065
     Dates: start: 20171218, end: 20180116
  11. DEXAMETHASONE SODIUM PHOSPHATE [Concomitant]
     Active Substance: DEXAMETHASONE SODIUM PHOSPHATE
     Dosage: 6.6 MG
     Route: 065
     Dates: start: 20180209, end: 20180209
  12. DEXAMETHASONE SODIUM PHOSPHATE [Concomitant]
     Active Substance: DEXAMETHASONE SODIUM PHOSPHATE
     Dosage: 6.6 MG, 1X/3 WEEKS
     Route: 065
     Dates: start: 20180427, end: 20180518
  13. ISCOTIN [Concomitant]
     Active Substance: ISONIAZID
     Indication: Infection prophylaxis
     Dosage: UNK
     Route: 048
     Dates: start: 20171215
  14. ITRACONAZOLE [Concomitant]
     Active Substance: ITRACONAZOLE
     Indication: Infection prophylaxis
     Dosage: UNK
     Route: 048
     Dates: start: 20171215
  15. SULFAMETHOXAZOLE\TRIMETHOPRIM [Concomitant]
     Active Substance: SULFAMETHOXAZOLE\TRIMETHOPRIM
     Indication: Infection prophylaxis
     Dosage: UNK
     Route: 048
     Dates: start: 20171215
  16. AMLODIPINE BESYLATE [Concomitant]
     Active Substance: AMLODIPINE BESYLATE
     Indication: Prophylaxis
     Dosage: UNK
     Route: 048
     Dates: end: 20180122
  17. FEBUXOSTAT [Concomitant]
     Active Substance: FEBUXOSTAT
     Indication: Prophylaxis
     Dosage: UNK
     Route: 048
  18. FUROSEMIDE [Concomitant]
     Active Substance: FUROSEMIDE
     Indication: Urine output decreased
     Dosage: UNK
     Route: 048
     Dates: start: 20180207, end: 20180528
  19. FUROSEMIDE [Concomitant]
     Active Substance: FUROSEMIDE
     Indication: Prophylaxis
  20. ZOLPIDEM TARTRATE [Concomitant]
     Active Substance: ZOLPIDEM TARTRATE
     Indication: Prophylaxis
     Dosage: UNK
     Route: 048
  21. MAGNESIUM OXIDE [Concomitant]
     Active Substance: MAGNESIUM OXIDE
     Dosage: UNK
     Route: 048
  22. XYZAL [Concomitant]
     Active Substance: LEVOCETIRIZINE DIHYDROCHLORIDE
     Indication: Rash
     Dosage: UNK
     Route: 048
     Dates: start: 20180321
  23. CLOSTRIDIUM BUTYRICUM SPORES STRAIN M-55 [Concomitant]
     Active Substance: CLOSTRIDIUM BUTYRICUM SPORES STRAIN M-55
     Indication: Prophylaxis
     Dosage: UNK
     Route: 048
  24. UBIDECARENONE [Concomitant]
     Active Substance: UBIDECARENONE
     Indication: Prophylaxis
     Dosage: UNK
     Route: 048
  25. RABEPRAZOLE SODIUM [Concomitant]
     Active Substance: RABEPRAZOLE SODIUM
     Indication: Prophylaxis
     Dosage: UNK
     Route: 048
  26. PREDONINE [Concomitant]
     Active Substance: PREDNISOLONE
     Indication: Prophylaxis
     Dosage: UNK
     Route: 048
     Dates: start: 20171219, end: 20180503
  27. DIMEMORFAN PHOSPHATE [Concomitant]
     Active Substance: DIMEMORFAN PHOSPHATE
     Indication: Cough
     Dosage: UNK
     Route: 048
     Dates: start: 20180429, end: 20180518
  28. ATARAX [Concomitant]
     Active Substance: HYDROXYZINE HYDROCHLORIDE
     Indication: Rash
     Dosage: UNK
     Route: 048
     Dates: start: 20180320, end: 20180515
  29. AMITIZA [Concomitant]
     Active Substance: LUBIPROSTONE
     Dosage: UNK
     Route: 048
     Dates: start: 20171229
  30. URSODIOL [Concomitant]
     Active Substance: URSODIOL
     Indication: Liver disorder
     Dosage: UNK
     Route: 048
     Dates: start: 20171226, end: 20180528
  31. OLOPATADINE HYDROCHLORIDE OD [Concomitant]
     Indication: Rash
     Dosage: UNK
     Route: 048
     Dates: start: 20171222
  32. OLOPATADINE HYDROCHLORIDE OD [Concomitant]
     Indication: Prophylaxis
  33. CARBOCYSTEINE [Concomitant]
     Active Substance: CARBOCYSTEINE
     Indication: Rhinorrhoea
     Dosage: UNK
     Route: 048
     Dates: start: 20180105, end: 20180524
  34. SITAFLOXACIN [Concomitant]
     Active Substance: SITAFLOXACIN
     Indication: Sinusitis
     Dosage: UNK
     Route: 048
     Dates: start: 20180205, end: 20180211
  35. CODEINE PHOSPHATE [Concomitant]
     Active Substance: CODEINE PHOSPHATE
     Indication: Cough
     Dosage: UNK
     Route: 048
     Dates: start: 20180222, end: 20180529
  36. SAMSCA [Concomitant]
     Active Substance: TOLVAPTAN
     Indication: Urine output decreased
     Dosage: UNK
     Route: 048
     Dates: start: 20180322, end: 20180528
  37. SENNOSIDES A AND B [Concomitant]
     Active Substance: SENNOSIDES A AND B
     Dosage: UNK
     Route: 048
     Dates: end: 20180524
  38. DOMPERIDONE [Concomitant]
     Active Substance: DOMPERIDONE
     Indication: Nausea
     Dosage: UNK
     Route: 048
     Dates: start: 20180127, end: 20180227
  39. BARACLUDE [Concomitant]
     Active Substance: ENTECAVIR
     Dosage: UNK
     Route: 048
     Dates: start: 20171214
  40. FLURBIPROFEN AXETIL [Concomitant]
     Active Substance: FLURBIPROFEN AXETIL
     Indication: Abdominal pain
     Dosage: UNK
     Route: 065
     Dates: start: 20180526, end: 20180527
  41. FURSULTIAMINE [Concomitant]
     Active Substance: FURSULTIAMINE
     Indication: Abdominal distension
     Dosage: UNK
     Route: 042
     Dates: start: 20180101, end: 20180102
  42. FURSULTIAMINE [Concomitant]
     Active Substance: FURSULTIAMINE
     Indication: Nutritional supplementation
  43. ELCATONIN [Concomitant]
     Active Substance: ELCATONIN
     Indication: Hypercalcaemia
     Dosage: UNK
     Route: 065
     Dates: start: 20180521, end: 20180527
  44. GANCICLOVIR [Concomitant]
     Active Substance: GANCICLOVIR
     Indication: Cytomegalovirus test positive
     Dosage: UNK
     Route: 042
     Dates: start: 20180523, end: 20180601
  45. POLARAMINE [Concomitant]
     Active Substance: DEXCHLORPHENIRAMINE MALEATE
     Indication: Rash
     Dosage: UNK
     Route: 048
     Dates: start: 20180321
  46. AMBROXOL HYDROCHLORIDE [Concomitant]
     Active Substance: AMBROXOL HYDROCHLORIDE
     Indication: Rhinorrhoea
     Dosage: UNK
     Route: 048
     Dates: start: 20180105, end: 20180524
  47. CLONAZEPAM [Concomitant]
     Active Substance: CLONAZEPAM
     Dosage: UNK
     Route: 048
     Dates: end: 20171218
  48. FILGRASTIM [Concomitant]
     Active Substance: FILGRASTIM
     Indication: Prophylaxis
     Dosage: UNK
     Route: 065
     Dates: start: 20171228
  49. AMPICILLIN SODIUM\SULBACTAM SODIUM [Concomitant]
     Active Substance: AMPICILLIN SODIUM\SULBACTAM SODIUM
     Indication: Pyrexia
     Dosage: UNK
     Route: 042
     Dates: start: 20180508, end: 20180514
  50. PANTOL [PANTHENOL] [Concomitant]
     Indication: Abdominal distension
     Dosage: UNK
     Route: 065
     Dates: start: 20171229, end: 20180102
  51. PANTOL [PANTHENOL] [Concomitant]
     Indication: Nutritional supplementation
  52. FURMETHY [Concomitant]
     Indication: Abdominal distension
     Dosage: UNK
     Route: 065
     Dates: start: 20171229, end: 20171231
  53. FURMETHY [Concomitant]
     Indication: Nutritional supplementation
  54. FUROSEMIDE [Concomitant]
     Active Substance: FUROSEMIDE
     Indication: Prophylaxis
     Dosage: UNK
     Route: 065
  55. PRIMPERAN [Concomitant]
     Active Substance: METOCLOPRAMIDE HYDROCHLORIDE
     Indication: Infusion related reaction
     Dosage: UNK
     Route: 065
     Dates: start: 20171229, end: 20180102
  56. HEPARIN SODIUM [Concomitant]
     Active Substance: HEPARIN SODIUM
     Indication: Prophylaxis
     Dosage: UNK
     Route: 065
  57. MAXIPIME [Concomitant]
     Active Substance: CEFEPIME HYDROCHLORIDE
     Indication: Pyrexia
     Dosage: UNK
     Route: 065
     Dates: start: 20180508, end: 20180514

REACTIONS (15)
  - Multiple organ dysfunction syndrome [Fatal]
  - Abdominal distension [Recovered/Resolved]
  - Cytomegalovirus test positive [Not Recovered/Not Resolved]
  - Liver disorder [Not Recovered/Not Resolved]
  - Rash [Recovering/Resolving]
  - Hypercalcaemia [Recovering/Resolving]
  - Hypoalbuminaemia [Not Recovered/Not Resolved]
  - Sinusitis [Not Recovered/Not Resolved]
  - Urine output decreased [Not Recovered/Not Resolved]
  - Infusion related reaction [Recovering/Resolving]
  - Infusion related reaction [Recovering/Resolving]
  - Abdominal pain [Recovered/Resolved]
  - Nasopharyngitis [Not Recovered/Not Resolved]
  - Insomnia [Not Recovered/Not Resolved]
  - Pyrexia [Recovered/Resolved]

NARRATIVE: CASE EVENT DATE: 20171225
